FAERS Safety Report 23809987 (Version 1)
Quarter: 2024Q2

REPORT INFORMATION
  Report Type: Spontaneous
  Country: US (occurrence: None)
  Receive Date: 20240501
  Receipt Date: 20240501
  Transmission Date: 20240716
  Serious: Yes (Hospitalization)
  Sender: FDA-Public Use
  Company Number: None

PATIENT
  Age: 44 Year
  Sex: Male
  Weight: 87 kg

DRUGS (1)
  1. LUMASON [Suspect]
     Active Substance: SULFUR HEXAFLUORIDE
     Indication: Echocardiogram
     Dosage: FREQUENCY : ONCE;?
     Route: 042
     Dates: start: 20230317, end: 20230317

REACTIONS (7)
  - Hypotension [None]
  - Acute myocardial infarction [None]
  - Distributive shock [None]
  - Substance abuse [None]
  - Alcohol use [None]
  - Syncope [None]
  - Infusion related reaction [None]

NARRATIVE: CASE EVENT DATE: 20230317
